FAERS Safety Report 6204461-7 (Version None)
Quarter: 2009Q2

REPORT INFORMATION
  Report Type: 
  Country: None (occurrence: None)
  Receive Date: 20090521
  Receipt Date: 20090508
  Transmission Date: 20091009
  Serious: Yes (Hospitalization)
  Sender: FDA-Public Use
  Company Number: 150001L09JPN

PATIENT
  Age: 33 Year
  Sex: Female
  Weight: 59 kg

DRUGS (2)
  1. CHORIONIC GONADTROPIN [Suspect]
     Indication: OVULATION INDUCTION
  2. MENOTROPINS [Suspect]
     Indication: OVARIAN DISORDER

REACTIONS (3)
  - HETEROTOPIC PREGNANCY [None]
  - INTRA-ABDOMINAL HAEMORRHAGE [None]
  - OVARIAN HYPERSTIMULATION SYNDROME [None]
